FAERS Safety Report 18028690 (Version 3)
Quarter: 2021Q1

REPORT INFORMATION
  Report Type: Spontaneous
  Country: US (occurrence: US)
  Receive Date: 20200716
  Receipt Date: 20210330
  Transmission Date: 20210419
  Serious: Yes (Hospitalization, Disabling, Other)
  Sender: FDA-Public Use
  Company Number: US-ASTRAZENECA-2020SE88747

PATIENT
  Age: 48 Year
  Sex: Female

DRUGS (65)
  1. COLACE [Concomitant]
     Active Substance: DOCUSATE SODIUM
  2. VITAMIN D [Concomitant]
     Active Substance: VITAMIN D NOS
  3. GLUCOSE [Concomitant]
     Active Substance: DEXTROSE
  4. BUPROPION. [Concomitant]
     Active Substance: BUPROPION
  5. LOVASTATIN. [Concomitant]
     Active Substance: LOVASTATIN
  6. IBUPROFEN. [Concomitant]
     Active Substance: IBUPROFEN
  7. SPIRIVA [Concomitant]
     Active Substance: TIOTROPIUM BROMIDE MONOHYDRATE
  8. CEFDINIR. [Concomitant]
     Active Substance: CEFDINIR
  9. MUCINEX [Concomitant]
     Active Substance: GUAIFENESIN
  10. TRICOR [Concomitant]
     Active Substance: FENOFIBRATE
  11. TOUJEO [Concomitant]
     Active Substance: INSULIN GLARGINE
  12. DOXYCYCLINE. [Concomitant]
     Active Substance: DOXYCYCLINE
     Indication: INFECTION
     Dates: start: 2008, end: 2009
  13. TRAMADOL. [Concomitant]
     Active Substance: TRAMADOL
     Indication: PAIN
     Dates: start: 20080912
  14. NAPROXEN. [Concomitant]
     Active Substance: NAPROXEN
     Indication: INFECTION
     Dates: start: 20080912
  15. AVELOX [Concomitant]
     Active Substance: MOXIFLOXACIN HYDROCHLORIDE
     Indication: INFECTION
     Dates: start: 20080717
  16. BENADRYL [Concomitant]
     Active Substance: DIPHENHYDRAMINE HYDROCHLORIDE
     Indication: MAXILLOFACIAL SINUS NEOPLASM
  17. RANITIDINE. [Concomitant]
     Active Substance: RANITIDINE
  18. COMBIVENT [Concomitant]
     Active Substance: ALBUTEROL SULFATE\IPRATROPIUM BROMIDE
  19. CEPHALEXIN. [Concomitant]
     Active Substance: CEPHALEXIN
  20. CLINDAMYCIN. [Concomitant]
     Active Substance: CLINDAMYCIN
  21. NEXIUM [Suspect]
     Active Substance: ESOMEPRAZOLE MAGNESIUM
     Indication: GASTROOESOPHAGEAL REFLUX DISEASE
     Route: 048
  22. OMEPRAZOLE. [Suspect]
     Active Substance: OMEPRAZOLE
     Indication: GASTROOESOPHAGEAL REFLUX DISEASE
     Route: 065
     Dates: start: 20100721
  23. ALENDRONATE [Concomitant]
     Active Substance: ALENDRONATE SODIUM
  24. GENTAMICIN. [Concomitant]
     Active Substance: GENTAMICIN
     Indication: INFECTION
     Dates: start: 2008, end: 2009
  25. ZOLPIDEM [Concomitant]
     Active Substance: ZOLPIDEM TARTRATE
  26. ALLEGRA [Concomitant]
     Active Substance: FEXOFENADINE HYDROCHLORIDE
  27. SINGULAIR [Concomitant]
     Active Substance: MONTELUKAST SODIUM
  28. CIPRO [Concomitant]
     Active Substance: CIPROFLOXACIN HYDROCHLORIDE
     Indication: INFECTION
     Dates: start: 2008, end: 2010
  29. NEOMYCIN. [Concomitant]
     Active Substance: NEOMYCIN
     Indication: INFECTION
     Dates: start: 20080912
  30. TUMS [Concomitant]
     Active Substance: CALCIUM CARBONATE
  31. NEXIUM [Suspect]
     Active Substance: ESOMEPRAZOLE MAGNESIUM
     Indication: GASTROOESOPHAGEAL REFLUX DISEASE
     Route: 048
     Dates: start: 2008
  32. TYLENOL [Concomitant]
     Active Substance: ACETAMINOPHEN
  33. LISINOPRIL. [Concomitant]
     Active Substance: LISINOPRIL
     Indication: HYPERTENSION
     Dates: start: 2008, end: 2010
  34. AMOXICILLIN. [Concomitant]
     Active Substance: AMOXICILLIN
     Indication: INFECTION
     Dates: start: 2009, end: 2010
  35. ENALAPRIL [Concomitant]
     Active Substance: ENALAPRIL
     Indication: HYPERTENSION
     Dates: start: 2008, end: 2009
  36. TUSSIONEX PENNKINETIC [Concomitant]
     Active Substance: CHLORPHENIRAMINE\HYDROCODONE
  37. FLUCONAZOLE. [Concomitant]
     Active Substance: FLUCONAZOLE
  38. PROMETHAZINE [Concomitant]
     Active Substance: PROMETHAZINE HYDROCHLORIDE
  39. ATROVENT [Concomitant]
     Active Substance: IPRATROPIUM BROMIDE
  40. CYCLOBENZAPRINE. [Concomitant]
     Active Substance: CYCLOBENZAPRINE
  41. CHERATUSSIN [Concomitant]
     Active Substance: AMMONIUM CHLORIDE\DEXTROMETHORPHAN\SODIUM CITRATE
  42. SYMBICORT [Concomitant]
     Active Substance: BUDESONIDE\FORMOTEROL FUMARATE DIHYDRATE
  43. ZOVIRAX [Concomitant]
     Active Substance: ACYCLOVIR
     Indication: INFECTION
     Dates: start: 20090331
  44. METHYLPREDNISOLONE. [Concomitant]
     Active Substance: METHYLPREDNISOLONE
  45. VENTOLIN [Concomitant]
     Active Substance: ALBUTEROL SULFATE
  46. PANTOPRAZOLE [Suspect]
     Active Substance: PANTOPRAZOLE
     Indication: GASTROOESOPHAGEAL REFLUX DISEASE
     Route: 065
  47. NOVOLOG [Concomitant]
     Active Substance: INSULIN ASPART
  48. XANAX [Concomitant]
     Active Substance: ALPRAZOLAM
  49. LEVAQUIN [Concomitant]
     Active Substance: LEVOFLOXACIN
     Indication: INFECTION
     Dates: start: 20090114, end: 20091023
  50. PENICILLIN [Concomitant]
     Active Substance: PENICILLIN
     Indication: INFECTION
     Dates: start: 20080912
  51. HUMALOG [Concomitant]
     Active Substance: INSULIN LISPRO
  52. PERMETHRIN. [Concomitant]
     Active Substance: PERMETHRIN
  53. METHOCARBAMOL. [Concomitant]
     Active Substance: METHOCARBAMOL
  54. DIPHENOXYLATE [Concomitant]
     Active Substance: DIPHENOXYLATE
  55. LANTUS [Concomitant]
     Active Substance: INSULIN GLARGINE
  56. ALBUTEROL. [Concomitant]
     Active Substance: ALBUTEROL
  57. LASIX [Concomitant]
     Active Substance: FUROSEMIDE
     Dates: start: 2009, end: 2010
  58. PREDNISONE. [Concomitant]
     Active Substance: PREDNISONE
  59. ESCITALOPRAM [Concomitant]
     Active Substance: ESCITALOPRAM OXALATE
  60. AZITHROMYCIN ANHYDROUS. [Concomitant]
     Active Substance: AZITHROMYCIN ANHYDROUS
     Indication: INFECTION
     Dates: start: 2009, end: 2010
  61. CITALOPRAM [Concomitant]
     Active Substance: CITALOPRAM HYDROBROMIDE
  62. METFORMIN [Concomitant]
     Active Substance: METFORMIN HYDROCHLORIDE
  63. PROVENTIL [Concomitant]
     Active Substance: ALBUTEROL
  64. VENLAFAXINE [Concomitant]
     Active Substance: VENLAFAXINE HYDROCHLORIDE
  65. PROCHLORPERAZINE. [Concomitant]
     Active Substance: PROCHLORPERAZINE

REACTIONS (7)
  - Renal failure [Unknown]
  - Renal tubular necrosis [Unknown]
  - Chronic kidney disease [Not Recovered/Not Resolved]
  - Hyperkalaemia [Unknown]
  - Rebound acid hypersecretion [Unknown]
  - Tubulointerstitial nephritis [Unknown]
  - Acute kidney injury [Not Recovered/Not Resolved]

NARRATIVE: CASE EVENT DATE: 2008
